FAERS Safety Report 9526536 (Version 1)
Quarter: 2013Q3

REPORT INFORMATION
  Report Type: Spontaneous
  Country: US (occurrence: US)
  Receive Date: 20130916
  Receipt Date: 20130916
  Transmission Date: 20140515
  Serious: Yes (Other)
  Sender: FDA-Public Use
  Company Number: US-TEVA-431684USA

PATIENT
  Age: 60 Year
  Sex: Female

DRUGS (4)
  1. DOXORUBICIN [Suspect]
     Indication: BREAST CANCER STAGE III
     Route: 065
     Dates: end: 19990521
  2. CYCLOPHOSPHAMIDE [Concomitant]
     Indication: BREAST CANCER STAGE III
     Route: 065
  3. TAMOXIFEN [Concomitant]
     Indication: BREAST CANCER STAGE III
     Route: 065
  4. DESMOPRESSIN [Concomitant]
     Indication: DIABETES INSIPIDUS
     Route: 065

REACTIONS (5)
  - Cardiac failure congestive [Unknown]
  - Left ventricular dysfunction [Unknown]
  - Ventricular hypokinesia [Unknown]
  - Right ventricular dysfunction [Unknown]
  - Diabetes insipidus [Unknown]
